FAERS Safety Report 5375000-8 (Version None)
Quarter: 2007Q2

REPORT INFORMATION
  Report Type: 
  Country: None (occurrence: None)
  Receive Date: 20070629
  Receipt Date: 20070305
  Transmission Date: 20071010
  Serious: No
  Sender: FDA-Public Use
  Company Number: A0641902A

PATIENT
  Age: 46 Year
  Sex: Male

DRUGS (4)
  1. FLOVENT [Suspect]
     Indication: ASTHMA
     Dosage: 110MCG TWICE PER DAY
     Route: 055
     Dates: start: 19990101
  2. ZOLOFT [Concomitant]
  3. PROTONIX [Concomitant]
  4. PROPECIA [Concomitant]

REACTIONS (2)
  - INCREASED UPPER AIRWAY SECRETION [None]
  - THROAT IRRITATION [None]
